FAERS Safety Report 10509166 (Version 1)
Quarter: 2014Q4

REPORT INFORMATION
  Report Type: Spontaneous
  Country: DE (occurrence: DE)
  Receive Date: 20141009
  Receipt Date: 20141009
  Transmission Date: 20150528
  Serious: Yes (Other)
  Sender: FDA-Public Use
  Company Number: DE-TEVA-512618GER

PATIENT
  Age: 72 Year
  Sex: Female

DRUGS (5)
  1. ENALAPRIL ABZ 5 MG TABLETTEN [Suspect]
     Active Substance: ENALAPRIL
     Route: 048
     Dates: start: 20140626, end: 20140903
  2. NIFEDIPIN AL 10 [Concomitant]
     Route: 065
  3. ASS 1A 100 [Concomitant]
     Route: 065
  4. BISOPROLOL RATIO 1,25 [Concomitant]
     Route: 065
  5. THYRONAJOD 50 [Concomitant]
     Route: 065

REACTIONS (2)
  - Pertussis [Unknown]
  - Cough [Not Recovered/Not Resolved]

NARRATIVE: CASE EVENT DATE: 20140720
